FAERS Safety Report 7503733-3 (Version None)
Quarter: 2011Q2

REPORT INFORMATION
  Report Type: 
  Country: None (occurrence: None)
  Receive Date: 20110525
  Receipt Date: 20110517
  Transmission Date: 20111010
  Serious: Yes (Disabling)
  Sender: FDA-Public Use
  Company Number: PHHY2011GB41302

PATIENT
  Age: 70 Year
  Sex: Male
  Weight: 79 kg

DRUGS (13)
  1. FEBUXOSTAT [Suspect]
     Indication: GOUT
     Dosage: 40 MG, UNK
     Route: 048
     Dates: start: 20110201, end: 20110309
  2. ATENOLOL [Concomitant]
     Indication: HYPERTENSION
     Dosage: 50 MG, UNK
     Route: 048
  3. PHOS-EX [Concomitant]
     Dosage: 2 DF, TID
     Route: 048
  4. ALFACALCIDOL [Concomitant]
     Indication: PROPHYLAXIS
     Dosage: 0.25 UG, ONCE FOR EVERY TWO DAYS
     Route: 048
  5. AMLODIPINE [Concomitant]
     Indication: HYPERTENSION
     Dosage: 10 MG, UNK
     Route: 048
  6. CANDESARTAN CILEXETIL [Concomitant]
     Indication: HYPERTENSION
     Dosage: 8 MG, UNK
     Route: 048
  7. SIMVASTATIN [Concomitant]
     Dosage: 20 MG,
     Route: 048
  8. DARBEPOETIN ALFA [Concomitant]
     Dosage: 30 UG, QW
  9. DOXAZOSIN MESYLATE [Concomitant]
     Indication: HYPERTENSION
     Dosage: 8 MG, BID
     Route: 048
  10. FERROUS SULFATE TAB [Concomitant]
     Dosage: 200 MG, BID
     Route: 048
  11. OMEPRAZOLE [Suspect]
     Dosage: 20 MG,
     Route: 048
  12. FUROSEMIDE [Concomitant]
     Dosage: 40 MG,
     Route: 048
  13. OMEPRAZOLE [Concomitant]
     Dosage: 20 MG, UNK
     Route: 048

REACTIONS (1)
  - RENAL FAILURE [None]
